FAERS Safety Report 6067246-0 (Version None)
Quarter: 2009Q1

REPORT INFORMATION
  Report Type: 
  Country: None (occurrence: None)
  Receive Date: 20090205
  Receipt Date: 20090115
  Transmission Date: 20090719
  Serious: Yes (Hospitalization)
  Sender: FDA-Public Use
  Company Number: FR-AVENTIS-200910356FR

PATIENT
  Age: 83 Year
  Sex: Male

DRUGS (4)
  1. LASIX [Suspect]
     Indication: DRUG USE FOR UNKNOWN INDICATION
     Route: 048
     Dates: start: 20081122
  2. PNEUMO 23 [Suspect]
     Indication: DRUG USE FOR UNKNOWN INDICATION
     Route: 030
     Dates: start: 20081120, end: 20081120
  3. RISORDAN [Suspect]
     Indication: DRUG USE FOR UNKNOWN INDICATION
     Route: 048
     Dates: start: 20081122, end: 20081127
  4. DALACINE [Suspect]
     Indication: DRUG USE FOR UNKNOWN INDICATION
     Route: 048
     Dates: start: 20081122, end: 20081201

REACTIONS (1)
  - RENAL FAILURE [None]
